FAERS Safety Report 16190123 (Version 1)
Quarter: 2019Q2

REPORT INFORMATION
  Report Type: Spontaneous
  Country: DE (occurrence: DE)
  Receive Date: 20190412
  Receipt Date: 20190412
  Transmission Date: 20190711
  Serious: Yes (Other)
  Sender: FDA-Public Use
  Company Number: PHHY2019DE079499

PATIENT
  Age: 30 Year
  Sex: Female
  Weight: 74 kg

DRUGS (3)
  1. EXFORGE [Suspect]
     Active Substance: AMLODIPINE BESYLATE\VALSARTAN
     Indication: HYPERTENSION
     Dosage: 80 MG, QD (0. - 33.6. GESTATIONAL WEEK)
     Route: 048
  2. METHYLDOPA. [Concomitant]
     Active Substance: METHYLDOPA
     Indication: HYPERTENSION
     Dosage: 750 MG, QD (34.1. - 36.5. GESTATIONAL WEEK)
     Route: 048
     Dates: start: 20180819, end: 20180906
  3. AMLODIPINE [Concomitant]
     Active Substance: AMLODIPINE BESYLATE
     Indication: HYPERTENSION
     Dosage: 5 MG, QD (34.1. - 36.5. GESTATIONAL WEEK)
     Route: 048
     Dates: start: 20180819, end: 20180906

REACTIONS (3)
  - Foetal hypokinesia [Unknown]
  - Foetal exposure during pregnancy [Unknown]
  - Oligohydramnios [Recovered/Resolved]
